FAERS Safety Report 6004442-2 (Version None)
Quarter: 2008Q4

REPORT INFORMATION
  Report Type: 
  Country: None (occurrence: None)
  Receive Date: 20081216
  Receipt Date: 20081208
  Transmission Date: 20090506
  Serious: Yes (Hospitalization, Disabling, Other)
  Sender: FDA-Public Use
  Company Number: US-MERCK-0809USA04554

PATIENT
  Age: 66 Year
  Sex: Male
  Weight: 107 kg

DRUGS (8)
  1. JANUVIA [Suspect]
     Indication: DIABETES MELLITUS
     Route: 048
     Dates: start: 20080527
  2. ACTOS [Concomitant]
     Route: 048
  3. LASIX [Concomitant]
     Route: 065
  4. LIPITOR [Concomitant]
     Route: 048
  5. NIASPAN [Concomitant]
     Route: 048
  6. LEVEMIR [Concomitant]
     Route: 058
     Dates: start: 20080801
  7. ADVAIR DISKUS 250/50 [Concomitant]
  8. [THERAPY UNSPECIFIED] [Concomitant]

REACTIONS (3)
  - ATRIAL FIBRILLATION [None]
  - CARDIAC FAILURE [None]
  - COR PULMONALE [None]
